FAERS Safety Report 4867752-8 (Version None)
Quarter: 2005Q4

REPORT INFORMATION
  Report Type: 
  Country: None (occurrence: None)
  Receive Date: 20051222
  Receipt Date: 20051222
  Transmission Date: 20060501
  Serious: Yes (Other)
  Sender: FDA-Public Use
  Company Number: None

PATIENT
  Age: 70 Year
  Sex: Female
  Weight: 62.5964 kg

DRUGS (7)
  1. TAXOTERE [Suspect]
     Indication: METASTASIS
     Dosage: 128 MG/ Q3/ IV
     Route: 042
     Dates: start: 20051011
  2. TAXOTERE [Suspect]
     Indication: TRANSITIONAL CELL CARCINOMA
     Dosage: 128 MG/ Q3/ IV
     Route: 042
     Dates: start: 20051011
  3. GLEEVEC [Suspect]
     Indication: TRANSITIONAL CELL CARCINOMA
     Dosage: 600 MG/QD FOR 6 DAYS/ PO
     Route: 048
     Dates: start: 20051028, end: 20051031
  4. LORA TAB [Concomitant]
  5. TRADADONE [Concomitant]
  6. NAPROSEN [Concomitant]
  7. NYSTATIN [Concomitant]

REACTIONS (1)
  - BLOOD ALKALINE PHOSPHATASE INCREASED [None]
